FAERS Safety Report 17230890 (Version 2)
Quarter: 2020Q1

REPORT INFORMATION
  Report Type: Spontaneous
  Country: CA (occurrence: CA)
  Receive Date: 20200103
  Receipt Date: 20200304
  Transmission Date: 20200409
  Serious: Yes (Death, Other)
  Sender: FDA-Public Use
  Company Number: CA-TEVA-2019-CA-1162154

PATIENT
  Age: 65 Year
  Sex: Male

DRUGS (9)
  1. SALBUTAMOL [Concomitant]
     Active Substance: ALBUTEROL
     Indication: PRODUCT USED FOR UNKNOWN INDICATION
     Route: 065
  2. GABAPENTIN. [Suspect]
     Active Substance: GABAPENTIN
     Indication: PRODUCT USED FOR UNKNOWN INDICATION
     Route: 065
  3. ATROVENT [Suspect]
     Active Substance: IPRATROPIUM BROMIDE
     Indication: PRODUCT USED FOR UNKNOWN INDICATION
     Route: 065
  4. PREDNISONE. [Concomitant]
     Active Substance: PREDNISONE
     Indication: PRODUCT USED FOR UNKNOWN INDICATION
     Route: 065
  5. THEOPHYLLINE [Concomitant]
     Active Substance: THEOPHYLLINE ANHYDROUS
     Indication: PRODUCT USED FOR UNKNOWN INDICATION
     Route: 065
  6. VENTOLIN [Concomitant]
     Active Substance: ALBUTEROL SULFATE
     Indication: PRODUCT USED FOR UNKNOWN INDICATION
     Route: 065
  7. LYRICA [Suspect]
     Active Substance: PREGABALIN
     Indication: PRODUCT USED FOR UNKNOWN INDICATION
     Route: 065
  8. TIOTROPIUM BROMIDE [Concomitant]
     Active Substance: TIOTROPIUM BROMIDE
     Indication: PRODUCT USED FOR UNKNOWN INDICATION
     Route: 065
  9. ADVAIR HFA [Suspect]
     Active Substance: FLUTICASONE PROPIONATE\SALMETEROL XINAFOATE
     Indication: CHRONIC OBSTRUCTIVE PULMONARY DISEASE
     Dosage: 2 DOSAGE FORMS DAILY;

REACTIONS (20)
  - Cardiac disorder [Fatal]
  - Dyspnoea [Fatal]
  - Respiratory disorder [Fatal]
  - Productive cough [Fatal]
  - Chronic obstructive pulmonary disease [Fatal]
  - Peripheral swelling [Fatal]
  - Weight loss poor [Fatal]
  - Condition aggravated [Fatal]
  - Musculoskeletal pain [Fatal]
  - Sputum retention [Fatal]
  - Weight decreased [Fatal]
  - Cough [Fatal]
  - Oxygen saturation decreased [Fatal]
  - Fluid retention [Fatal]
  - Adverse event [Fatal]
  - Arthralgia [Fatal]
  - Drug ineffective [Fatal]
  - Dyspnoea exertional [Fatal]
  - Myocardial infarction [Fatal]
  - Lung disorder [Fatal]
